FAERS Safety Report 16608375 (Version 1)
Quarter: 2019Q3

REPORT INFORMATION
  Report Type: Spontaneous
  Country: DE (occurrence: DE)
  Receive Date: 20190722
  Receipt Date: 20190722
  Transmission Date: 20191004
  Serious: Yes (Hospitalization, Other)
  Sender: FDA-Public Use
  Company Number: DE-PFIZER INC-2019306400

PATIENT
  Age: 86 Year
  Sex: Male

DRUGS (12)
  1. RIVASTIGMIN [RIVASTIGMINE] [Concomitant]
     Active Substance: RIVASTIGMINE
     Dosage: 4.6 MG, 1X/DAY
     Route: 062
  2. PANTOPRAZOL [PANTOPRAZOLE] [Concomitant]
     Active Substance: PANTOPRAZOLE
     Dosage: 40 MG, 1X/DAY
  3. CALCIGEN D [Concomitant]
     Active Substance: CALCIUM CARBONATE\CHOLECALCIFEROL
     Dosage: UNK UNK, 2X/DAY
  4. ASPIRIN. [Concomitant]
     Active Substance: ASPIRIN
     Dosage: 100 MG, 1X/DAY
  5. TORASEMID [Concomitant]
     Active Substance: TORSEMIDE
     Dosage: 10 MG, 1X/DAY
  6. MACROGOL [Concomitant]
     Active Substance: POLYETHYLENE GLYCOLS
     Dosage: UNK UNK, AS NEEDED
  7. RIOPAN [MAGALDRATE] [Concomitant]
     Active Substance: MAGALDRATE
     Dosage: UNK UNK, AS NEEDED
  8. UNACID [AMPICILLIN SODIUM;SULBACTAM SODIUM] [Suspect]
     Active Substance: AMPICILLIN SODIUM\SULBACTAM SODIUM
     Dosage: UNK (REPROTED AS 2)
  9. PRETERAX [INDAPAMIDE;PERINDOPRIL ERBUMINE] [Concomitant]
     Dosage: [INDAPAMIDE 2.5 MG]/[PERINDOPRIL ERBUMINE 6.25], UNK
  10. XIPAMID [Concomitant]
     Active Substance: XIPAMIDE
     Dosage: 10 MG, 1X/DAY
  11. MEZAVANT [Concomitant]
     Active Substance: MESALAMINE
     Dosage: 1200 MG, 2X/DAY
  12. BUDENOFALK [Concomitant]
     Active Substance: BUDESONIDE
     Dosage: 9 MG, 1X/DAY

REACTIONS (4)
  - Circulatory collapse [Unknown]
  - Diarrhoea [Unknown]
  - General physical health deterioration [Unknown]
  - Asthenia [Unknown]
